FAERS Safety Report 10050434 (Version 1)
Quarter: 2014Q2

REPORT INFORMATION
  Report Type: Spontaneous
  Country: FR (occurrence: FR)
  Receive Date: 20140401
  Receipt Date: 20140401
  Transmission Date: 20141212
  Serious: Yes (Hospitalization)
  Sender: FDA-Public Use
  Company Number: FR-PFIZER INC-2014085743

PATIENT
  Age: 70 Year
  Sex: Female

DRUGS (16)
  1. TRIFLUCAN [Suspect]
     Indication: CANDIDA INFECTION
     Dosage: 200 MG, DAILY
     Route: 048
     Dates: start: 20140201, end: 20140216
  2. NORSET [Concomitant]
     Dosage: 2 DOSE FORMS X 15 MG AT BEDTIME
  3. NOCTAMIDE [Concomitant]
     Dosage: 1.5 DOSE FORMS X 2 MG IN THE EVENING
  4. EFFEXOR [Concomitant]
     Dosage: 4 DOSE FORMS X 75 MG IN THE MORNING
  5. LYSANXIA [Concomitant]
     Dosage: 10 MG, 3X/DAY
  6. LEVOTHYROX [Concomitant]
     Dosage: 25 UG, 1X/DAY, THE MORNING
  7. THERALENE [Concomitant]
     Dosage: 15 TO 20 DROPS AT BEDTIME
  8. SIMVASTATIN [Concomitant]
     Dosage: 20 MG, 1X/DAY, IN THE EVENING
  9. LUBENTYL [Concomitant]
     Dosage: 2 TEASPOONFUL, 1X/DAY
  10. ECONAZOLE [Concomitant]
     Dosage: 1 APPLICATION, 2X/DAY
  11. FORLAX [Concomitant]
     Dosage: 2 DF, 3X/DAY
  12. KARDEGIC [Concomitant]
     Dosage: 75 MG, 1X/DAY
  13. PARACETAMOL [Concomitant]
     Dosage: AS NEEDED
  14. VOLTARENE [Concomitant]
     Dosage: AS NEEDED
  15. SULFARLEM [Concomitant]
     Dosage: 25 MG X 2 IN THE MORNING, AT NOON AND IN THE EVENING
  16. PANTOPRAZOLE [Concomitant]
     Dosage: 20 MG, 1X/DAY

REACTIONS (1)
  - Lymphopenia [Recovered/Resolved]
